FAERS Safety Report 15540514 (Version 1)
Quarter: 2018Q4

REPORT INFORMATION
  Report Type: Report from Study
  Country: JP (occurrence: JP)
  Receive Date: 20181023
  Receipt Date: 20181023
  Transmission Date: 20190205
  Serious: Yes (Other)
  Sender: FDA-Public Use
  Company Number: JP-ROCHE-2202330

PATIENT
  Sex: Female

DRUGS (3)
  1. BEVACIZUMAB. [Suspect]
     Active Substance: BEVACIZUMAB
     Indication: OVARIAN EPITHELIAL CANCER RECURRENT
     Route: 042
  2. CARBOPLATIN. [Suspect]
     Active Substance: CARBOPLATIN
     Indication: OVARIAN EPITHELIAL CANCER
     Dosage: (AREA UNDER THE CURVE 5) OVER ONE HOUR
     Route: 042
  3. PACLITAXEL. [Suspect]
     Active Substance: PACLITAXEL
     Indication: OVARIAN EPITHELIAL CANCER
     Dosage: OVER 3 HOURS
     Route: 042

REACTIONS (14)
  - Dysphonia [Unknown]
  - Neutropenia [Unknown]
  - Anaemia [Unknown]
  - Fatigue [Unknown]
  - Malaise [Unknown]
  - Sensory disturbance [Unknown]
  - Intestinal obstruction [Unknown]
  - Proteinuria [Unknown]
  - Alopecia [Unknown]
  - Stomatitis [Unknown]
  - Epistaxis [Unknown]
  - Thrombocytopenia [Unknown]
  - Embolism [Unknown]
  - Hypertension [Unknown]
